FAERS Safety Report 5196798-8 (Version None)
Quarter: 2006Q4

REPORT INFORMATION
  Report Type: 
  Country: None (occurrence: None)
  Receive Date: 20061227
  Receipt Date: 20061212
  Transmission Date: 20070319
  Serious: Yes (Hospitalization)
  Sender: FDA-Public Use
  Company Number: 2006152603

PATIENT
  Age: 62 Year
  Sex: Female

DRUGS (3)
  1. DILANTIN [Suspect]
  2. TEMODAR [Concomitant]
  3. THERAPEUTIC RADIOPHARMACEUTICALS (THERAPEUTIC RADIOPHARMACEUTICALS) [Concomitant]

REACTIONS (8)
  - ANTICONVULSANT DRUG LEVEL INCREASED [None]
  - DEHYDRATION [None]
  - MUSCULAR WEAKNESS [None]
  - NAUSEA [None]
  - NEOPLASM PROGRESSION [None]
  - PERIPHERAL MOTOR NEUROPATHY [None]
  - VISION BLURRED [None]
  - VOMITING [None]
